FAERS Safety Report 7632965-9 (Version None)
Quarter: 2011Q3

REPORT INFORMATION
  Report Type: 
  Country: None (occurrence: None)
  Receive Date: 20110725
  Receipt Date: 20110714
  Transmission Date: 20111222
  Serious: Yes (Hospitalization, Other)
  Sender: FDA-Public Use
  Company Number: PHFR2011GB04261

PATIENT
  Sex: Male

DRUGS (1)
  1. CLOZAPINE [Suspect]

REACTIONS (6)
  - HYPERHIDROSIS [None]
  - THIRST [None]
  - DYSPNOEA [None]
  - DIABETES MELLITUS [None]
  - OVERWEIGHT [None]
  - CONFUSIONAL STATE [None]
